FAERS Safety Report 10152624 (Version 1)
Quarter: 2014Q2

REPORT INFORMATION
  Report Type: Spontaneous
  Country: GB (occurrence: GB)
  Receive Date: 20140505
  Receipt Date: 20140505
  Transmission Date: 20141212
  Serious: Yes (Hospitalization)
  Sender: FDA-Public Use
  Company Number: PHFR2014GB003237

PATIENT
  Sex: Female

DRUGS (2)
  1. CLOZARIL [Suspect]
     Indication: SCHIZOPHRENIA
     Dosage: UNK
     Route: 048
     Dates: start: 20100728
  2. CLOZARIL [Suspect]
     Dosage: DOSE REDUCED
     Route: 048

REACTIONS (3)
  - Urinary tract infection [Recovered/Resolved]
  - Contusion [Recovered/Resolved]
  - Mobility decreased [Recovered/Resolved]
